FAERS Safety Report 8895225 (Version 1)
Quarter: 2012Q4

REPORT INFORMATION
  Report Type: 
  Country: US (occurrence: US)
  Receive Date: 20121107
  Receipt Date: 20121107
  Transmission Date: 20130627
  Serious: No
  Sender: FDA-Public Use
  Company Number: US-AMGEN-USASP2011051238

PATIENT
  Age: 42 Year
  Sex: Female
  Weight: 81.63 kg

DRUGS (5)
  1. ENBREL [Suspect]
     Indication: PSORIASIS
     Dosage: 50 mg, 2 times/wk
     Route: 058
     Dates: start: 20110722
  2. ENBREL [Suspect]
     Dosage: 50 mg, qwk
     Route: 058
  3. SEROQUEL [Concomitant]
     Dosage: 25 mg, UNK
     Route: 048
  4. CLOBETASOL 0.05% [Concomitant]
  5. OMEGA 3 FISH OIL [Concomitant]
     Route: 048

REACTIONS (6)
  - Cough [Recovered/Resolved]
  - Nasopharyngitis [Unknown]
  - Injection site pruritus [Unknown]
  - Injection site erythema [Unknown]
  - Injection site pain [Unknown]
  - Furuncle [Recovered/Resolved]
